FAERS Safety Report 16025825 (Version 2)
Quarter: 2019Q2

REPORT INFORMATION
  Report Type: Spontaneous
  Country: DE (occurrence: DE)
  Receive Date: 20190302
  Receipt Date: 20190610
  Transmission Date: 20190711
  Serious: Yes (Other)
  Sender: FDA-Public Use
  Company Number: DE-SUN PHARMACEUTICAL INDUSTRIES LTD-2019R1-200633

PATIENT
  Age: 41 Year
  Sex: Female

DRUGS (3)
  1. MAGNESIUM [Concomitant]
     Active Substance: MAGNESIUM
     Indication: SUPPORTIVE CARE
     Dosage: 40 MILLIGRAM, TID (1-1-1)
     Route: 065
  2. ASPIRIN. [Suspect]
     Active Substance: ASPIRIN
     Indication: PROPHYLAXIS
     Dosage: 100 MILLIGRAM, DAILY
     Route: 065
  3. PROGESTERONE. [Concomitant]
     Active Substance: PROGESTERONE
     Indication: SUPPORTIVE CARE
     Dosage: 100 MILLIGRAM, BID (2-0-2)
     Route: 065

REACTIONS (4)
  - Haemolysis [Recovering/Resolving]
  - Gestational hypertension [Recovering/Resolving]
  - Exposure during pregnancy [Unknown]
  - Premature delivery [Unknown]
